FAERS Safety Report 22206990 (Version 1)
Quarter: 2023Q2

REPORT INFORMATION
  Report Type: Spontaneous
  Country: US (occurrence: None)
  Receive Date: 20230412
  Receipt Date: 20230412
  Transmission Date: 20230722
  Serious: Yes (Other)
  Sender: FDA-Public Use
  Company Number: None

PATIENT
  Age: 11 Year
  Sex: Male

DRUGS (16)
  1. OPSUMIT [Suspect]
     Active Substance: MACITENTAN
     Indication: Pulmonary arterial hypertension
     Dosage: FREQUENCY : DAILY;?
     Route: 048
     Dates: start: 20220805
  2. OPSUMIT [Suspect]
     Active Substance: MACITENTAN
     Indication: Heritable pulmonary arterial hypertension
  3. TADALAFIL [Concomitant]
  4. QUETIAPINE [Concomitant]
  5. PHYTONADIONE [Concomitant]
  6. FLUOXETINE [Concomitant]
  7. FUROSEMIDE [Concomitant]
  8. COLCHICINE [Concomitant]
  9. TRANEXAMIC ACID [Concomitant]
  10. AMINOCAPROIC ACID [Concomitant]
  11. SODIUM FLUORIDE DENTAL CREAM [Concomitant]
  12. FLONASE [Concomitant]
  13. ALVESCO HFA [Concomitant]
  14. ALBUTEROL HFA [Concomitant]
  15. ALBUTEROL INHL NEB SOLN [Concomitant]
  16. VITAMINS [Concomitant]
     Active Substance: VITAMINS

REACTIONS (1)
  - Gastroenteritis [None]

NARRATIVE: CASE EVENT DATE: 20230322
